FAERS Safety Report 26019163 (Version 1)
Quarter: 2025Q4

REPORT INFORMATION
  Report Type: Spontaneous
  Country: US (occurrence: US)
  Receive Date: 20251110
  Receipt Date: 20251110
  Transmission Date: 20260118
  Serious: Yes (Other)
  Sender: MDD OPERATIONS
  Company Number: US-MDD US Operations-MDD202510-004531

PATIENT
  Age: 75 Year
  Sex: Male

DRUGS (1)
  1. ONAPGO [Suspect]
     Active Substance: APOMORPHINE HYDROCHLORIDE
     Indication: Parkinson^s disease
     Dosage: DOSE: 1MG PER HOUR FOR 16 HOURS A DAY (THE PATIENT HAS ONLY USED ONAPGO FOR TWO DAYS)
     Dates: start: 20251024, end: 20251026

REACTIONS (3)
  - Parkinson^s disease [Unknown]
  - Fall [Unknown]
  - Fatigue [Unknown]
